FAERS Safety Report 9720197 (Version 1)
Quarter: 2013Q4

REPORT INFORMATION
  Report Type: Spontaneous
  Country: US (occurrence: US)
  Receive Date: 20131129
  Receipt Date: 20131129
  Transmission Date: 20140711
  Serious: Yes (Hospitalization, Other)
  Sender: FDA-Public Use
  Company Number: US-PAR PHARMACEUTICAL, INC-2013SCPR007800

PATIENT
  Sex: 0

DRUGS (2)
  1. FENTANYL CITRATE [Suspect]
     Indication: PRODUCT USED FOR UNKNOWN INDICATION
     Dosage: 1 DF, UNKNOWN, ROUTE OF ADMINISTRATION WAS DERMAL AND ORAL
  2. HYDROMORPHONE [Suspect]
     Indication: PRODUCT USED FOR UNKNOWN INDICATION
     Dosage: 100 DF, UNKNOWN,  ROUTE OF ADMINISTRATION WAS DERMAL AND ORAL

REACTIONS (6)
  - Toxicity to various agents [Unknown]
  - Bradycardia [Unknown]
  - Lethargy [Unknown]
  - Respiratory depression [Unknown]
  - Somnolence [Unknown]
  - Hypotension [Unknown]
